FAERS Safety Report 8828634 (Version 1)
Quarter: 2012Q4

REPORT INFORMATION
  Report Type: 
  Country: US (occurrence: US)
  Receive Date: 20121005
  Receipt Date: 20121005
  Transmission Date: 20130627
  Serious: No
  Sender: FDA-Public Use
  Company Number: US-SANOFI-AVENTIS-2012SA041076

PATIENT
  Sex: Male

DRUGS (1)
  1. ELIGARD [Suspect]
     Indication: PROSTATE CANCER
     Route: 065
     Dates: start: 201111, end: 201111

REACTIONS (2)
  - Prostatic specific antigen increased [Unknown]
  - Drug ineffective [Unknown]
